FAERS Safety Report 9017485 (Version 2)
Quarter: 2013Q1

REPORT INFORMATION
  Report Type: Spontaneous
  Country: US (occurrence: US)
  Receive Date: 20130117
  Receipt Date: 20130123
  Transmission Date: 20140127
  Serious: Yes (Hospitalization)
  Sender: FDA-Public Use
  Company Number: US-BAXTER-2013BAX001600

PATIENT
  Sex: Female

DRUGS (3)
  1. DIANEAL LOW CALCIUM [Suspect]
     Indication: PERITONEAL DIALYSIS
     Route: 033
  2. DIANEAL LOW CALCIUM [Suspect]
     Dosage: AS LAST FILL
     Route: 033
  3. DIANEAL LOW CALCIUM [Suspect]
     Route: 033

REACTIONS (1)
  - Dehydration [Not Recovered/Not Resolved]
